FAERS Safety Report 26040205 (Version 1)
Quarter: 2025Q4

REPORT INFORMATION
  Report Type: Spontaneous
  Country: RU (occurrence: RU)
  Receive Date: 20251113
  Receipt Date: 20251113
  Transmission Date: 20260117
  Serious: Yes (Hospitalization, Other)
  Sender: RANBAXY
  Company Number: RU-SUN PHARMACEUTICAL INDUSTRIES LTD-2025R1-536258

PATIENT
  Age: 24 Year
  Sex: Female

DRUGS (2)
  1. CIPROFLOXACIN [Suspect]
     Active Substance: CIPROFLOXACIN
     Indication: Hepatic echinococciasis
     Dosage: 400 MILLIGRAM, DAILY
     Route: 042
  2. CEFTRIAXONE [Suspect]
     Active Substance: CEFTRIAXONE
     Indication: Hepatic echinococciasis
     Dosage: 2 GRAM, DAILY
     Route: 042

REACTIONS (2)
  - Atelectasis [Unknown]
  - Therapeutic response decreased [Unknown]
